FAERS Safety Report 8495252-5 (Version None)
Quarter: 2012Q3

REPORT INFORMATION
  Report Type: 
  Country: None (occurrence: None)
  Receive Date: 20120709
  Receipt Date: 20120702
  Transmission Date: 20120928
  Serious: Yes (Hospitalization)
  Sender: FDA-Public Use
  Company Number: US-BAYER-2012-021938

PATIENT
  Age: 38 Year
  Sex: Female
  Weight: 74.83 kg

DRUGS (9)
  1. HYDROCODONE BITARTRATE AND ACETAMINOPHEN [Concomitant]
     Dosage: 5-500
     Route: 048
     Dates: start: 20090127
  2. NSAID'S [Concomitant]
     Dosage: UNK UNK, PRN
     Route: 048
  3. FISH OIL [Concomitant]
     Dosage: 1 PILL DAILY
     Route: 048
  4. CO Q10 [Concomitant]
     Dosage: 1 PILL DAILY
     Route: 048
  5. IBUPROFEN (ADVIL) [Concomitant]
     Indication: MYALGIA
     Dosage: UNK UNK, PRN
     Route: 048
  6. MULTI-VITAMIN [Concomitant]
     Dosage: 1 PILL DAILY
     Route: 048
  7. YAZ [Suspect]
     Indication: MENSTRUAL CYCLE MANAGEMENT
     Dosage: UNK
     Route: 048
     Dates: start: 20070101, end: 20100601
  8. LEVOXYL [Concomitant]
     Dosage: 88 MCG, UNK
     Route: 048
     Dates: start: 20030101, end: 20110101
  9. LEVOTHROID [Concomitant]

REACTIONS (6)
  - NAUSEA [None]
  - ABDOMINAL PAIN UPPER [None]
  - CHOLELITHIASIS [None]
  - VOMITING [None]
  - PAIN [None]
  - CHOLECYSTITIS CHRONIC [None]
